FAERS Safety Report 14122355 (Version 2)
Quarter: 2018Q1

REPORT INFORMATION
  Report Type: Spontaneous
  Country: US (occurrence: US)
  Receive Date: 20171024
  Receipt Date: 20180123
  Transmission Date: 20180508
  Serious: No
  Sender: FDA-Public Use
  Company Number: US-IMPAX LABORATORIES, INC-2017-IPXL-02896

PATIENT
  Age: 69 Year
  Sex: Female

DRUGS (2)
  1. RYTARY [Suspect]
     Active Substance: CARBIDOPA\LEVODOPA
     Indication: PRODUCT USED FOR UNKNOWN INDICATION
     Dosage: 48.75/195 MG, 4 CAPSULES 3 TIMES PER DAY
     Route: 048
  2. RYTARY [Suspect]
     Active Substance: CARBIDOPA\LEVODOPA
     Dosage: 2 OF THE 48.75/195 MG AND 1 OF THE 36.25/145 MG, 3 DF, UNK
     Route: 048

REACTIONS (3)
  - Headache [Unknown]
  - Gait disturbance [Unknown]
  - Hallucination [Unknown]
